FAERS Safety Report 9643812 (Version 2)
Quarter: 2013Q4

REPORT INFORMATION
  Report Type: Report from Study
  Country: JP (occurrence: JP)
  Receive Date: 20131024
  Receipt Date: 20131029
  Transmission Date: 20140711
  Serious: Yes (Life-Threatening, Other)
  Sender: FDA-Public Use
  Company Number: JP-TAKEDA-TCI2013A06278

PATIENT
  Age: 76 Year
  Sex: Male

DRUGS (5)
  1. ALOGLIPTIN [Suspect]
     Indication: TYPE 2 DIABETES MELLITUS
     Dosage: 12.5 MG, QD
     Route: 048
     Dates: start: 20111118
  2. DIOVAN [Concomitant]
     Route: 048
  3. GASTER                             /00706001/ [Concomitant]
     Indication: GASTRITIS
     Route: 048
  4. CRESTOR [Concomitant]
     Route: 048
  5. PLETAAL [Concomitant]
     Route: 048

REACTIONS (1)
  - Lung neoplasm malignant [Not Recovered/Not Resolved]
